FAERS Safety Report 7690009-7 (Version None)
Quarter: 2011Q3

REPORT INFORMATION
  Report Type: 
  Country: None (occurrence: None)
  Receive Date: 20110818
  Receipt Date: 20110811
  Transmission Date: 20111222
  Serious: Yes (Other)
  Sender: FDA-Public Use
  Company Number: US-BRISTOL-MYERS SQUIBB COMPANY-15965668

PATIENT
  Age: 53 Year
  Sex: Male
  Weight: 88 kg

DRUGS (3)
  1. PRISTIQ [Interacting]
     Indication: ANXIETY
     Dosage: PROLONGED RELEASED TABLET
     Route: 048
     Dates: start: 20110506, end: 20110510
  2. PRAVACHOL [Suspect]
     Indication: HYPERTENSION
  3. PRISTIQ [Interacting]
     Indication: DEPRESSION
     Dosage: PROLONGED RELEASED TABLET
     Route: 048
     Dates: start: 20110506, end: 20110510

REACTIONS (4)
  - AGITATION [None]
  - DRUG INTERACTION [None]
  - MENTAL DISORDER [None]
  - ANXIETY [None]
